FAERS Safety Report 9632174 (Version 1)
Quarter: 2013Q4

REPORT INFORMATION
  Report Type: Spontaneous
  Country: CA (occurrence: None)
  Receive Date: 20131016
  Receipt Date: 20131016
  Transmission Date: 20140711
  Serious: Yes (Life-Threatening, Hospitalization)
  Sender: FDA-Public Use
  Company Number: 2013AP008759

PATIENT
  Age: 68 Year
  Sex: Male

DRUGS (9)
  1. AMLODIPINE (AMLODIPINE) [Suspect]
     Route: 048
  2. METFORMIN (METFORMIN) [Suspect]
     Route: 048
  3. ETHANOL (ETHANOL) (UNKNOWN) (ETHANOL) [Suspect]
  4. ACETYLSALICYLIC ACID (ACETYLSALICYLIC ACID) [Concomitant]
  5. CLONAZEPAM (CLONAZEPAM) (CLONAZEPAM) [Concomitant]
  6. GLYBURIDE (GLIBENCLAMIDE) [Concomitant]
  7. IBESARTAN (IBESARTAN) [Concomitant]
  8. TAMSULOSIN (TAMSULOSIN) [Concomitant]
  9. VITAMIN B-12 (CYANOCOBALAMIN) [Concomitant]

REACTIONS (5)
  - Overdose [None]
  - Suicide attempt [None]
  - Shock [None]
  - Toxicity to various agents [None]
  - Metabolic acidosis [None]
